FAERS Safety Report 15980889 (Version 1)
Quarter: 2019Q1

REPORT INFORMATION
  Report Type: Spontaneous
  Country: ES (occurrence: ES)
  Receive Date: 20190219
  Receipt Date: 20190219
  Transmission Date: 20190418
  Serious: Yes (Life-Threatening)
  Sender: FDA-Public Use
  Company Number: IND-ES-009507513-1902ESP004714

PATIENT
  Age: 41 Year
  Sex: Male

DRUGS (1)
  1. EXXIV [Suspect]
     Active Substance: ETORICOXIB
     Dosage: 90 MILLIGRAM, 24 HOURS
     Route: 048
     Dates: start: 20180122, end: 20190122

REACTIONS (1)
  - Glomerular filtration rate decreased [Recovered/Resolved]

NARRATIVE: CASE EVENT DATE: 20190122
